FAERS Safety Report 11145484 (Version 3)
Quarter: 2016Q1

REPORT INFORMATION
  Report Type: Report from Study
  Country: US (occurrence: US)
  Receive Date: 20150528
  Receipt Date: 20160310
  Transmission Date: 20160525
  Serious: Yes (Hospitalization, Other)
  Sender: FDA-Public Use
  Company Number: US-SA-2015SA068641

PATIENT
  Age: 55 Year
  Sex: Male

DRUGS (1)
  1. FABRAZYME [Suspect]
     Active Substance: AGALSIDASE BETA
     Indication: FABRY^S DISEASE
     Dosage: FREQUENCY: EVERY OTHER
     Route: 041
     Dates: start: 201203

REACTIONS (10)
  - Malaise [Not Recovered/Not Resolved]
  - Chest pain [Recovering/Resolving]
  - Cardiac disorder [Not Recovered/Not Resolved]
  - Guillain-Barre syndrome [Recovering/Resolving]
  - Influenza like illness [Recovering/Resolving]
  - Gastrointestinal pain [Recovering/Resolving]
  - Dyspnoea [Not Recovered/Not Resolved]
  - Palpitations [Not Recovered/Not Resolved]
  - Abasia [Recovering/Resolving]
  - Renal failure [Recovering/Resolving]
